FAERS Safety Report 16720913 (Version 2)
Quarter: 2019Q3

REPORT INFORMATION
  Report Type: Spontaneous
  Country: CN (occurrence: CN)
  Receive Date: 20190820
  Receipt Date: 20190830
  Transmission Date: 20191005
  Serious: Yes (Other)
  Sender: FDA-Public Use
  Company Number: CN-ELI_LILLY_AND_COMPANY-CN201908004894

PATIENT
  Age: 39 Year
  Sex: Male
  Weight: 64 kg

DRUGS (5)
  1. HUMALOG [Suspect]
     Active Substance: INSULIN LISPRO
     Dosage: 10 INTERNATIONAL UNIT, DAILY, IN EVENING
     Route: 058
     Dates: start: 201906
  2. HUMULIN R [Suspect]
     Active Substance: INSULIN HUMAN
     Indication: TYPE 2 DIABETES MELLITUS
     Dosage: 13 INTERNATIONAL UNIT, DAILY
     Route: 058
  3. METFORMIN [Concomitant]
     Active Substance: METFORMIN HYDROCHLORIDE
     Indication: TYPE 2 DIABETES MELLITUS
     Dosage: UNK, UNKNOWN
     Route: 048
  4. HUMALOG [Suspect]
     Active Substance: INSULIN LISPRO
     Indication: TYPE 2 DIABETES MELLITUS
     Dosage: 13 INTERNATIONAL UNIT, DAILY, IN MORNING
     Route: 058
     Dates: start: 201906
  5. HUMULIN R [Suspect]
     Active Substance: INSULIN HUMAN
     Dosage: 10 INTERNATIONAL UNIT, DAILY, EACH EVENING
     Route: 058

REACTIONS (2)
  - Swelling [Recovering/Resolving]
  - Drug hypersensitivity [Recovering/Resolving]
